FAERS Safety Report 16236031 (Version 1)
Quarter: 2019Q2

REPORT INFORMATION
  Report Type: Report from Study
  Country: US (occurrence: US)
  Receive Date: 20190425
  Receipt Date: 20190425
  Transmission Date: 20190711
  Serious: No
  Sender: FDA-Public Use
  Company Number: PHEH2019US017153

PATIENT
  Sex: Male

DRUGS (1)
  1. AL-4943A (OLOPATADINE HYDROCHLORIDE) [Suspect]
     Active Substance: OLOPATADINE HYDROCHLORIDE
     Route: 065

REACTIONS (2)
  - Blepharospasm [Unknown]
  - Visual impairment [Unknown]
